FAERS Safety Report 25172632 (Version 1)
Quarter: 2025Q2

REPORT INFORMATION
  Report Type: Spontaneous
  Country: US (occurrence: None)
  Receive Date: 20250408
  Receipt Date: 20250408
  Transmission Date: 20250717
  Serious: Yes (Hospitalization)
  Sender: FDA-CTU
  Company Number: None

PATIENT
  Age: 43 Year
  Sex: Male
  Weight: 95.3 kg

DRUGS (5)
  1. FLUOROURACIL [Suspect]
     Active Substance: FLUOROURACIL
  2. CAMPTOSAR [Suspect]
     Active Substance: IRINOTECAN HYDROCHLORIDE
  3. LEUCOVORIN CALCIUM [Suspect]
     Active Substance: LEUCOVORIN CALCIUM
  4. NIVOLUMAB [Suspect]
     Active Substance: NIVOLUMAB
  5. ELOXATIN [Suspect]
     Active Substance: OXALIPLATIN

REACTIONS (10)
  - Syncope [None]
  - Rectal haemorrhage [None]
  - Diarrhoea [None]
  - Fatigue [None]
  - Asthenia [None]
  - Haemoglobin decreased [None]
  - Oesophageal mass [None]
  - Oesophageal ulcer [None]
  - Dizziness [None]
  - Dizziness [None]

NARRATIVE: CASE EVENT DATE: 20250328
